FAERS Safety Report 8072433-6 (Version None)
Quarter: 2012Q1

REPORT INFORMATION
  Report Type: 
  Country: None (occurrence: None)
  Receive Date: 20120126
  Receipt Date: 20120118
  Transmission Date: 20120608
  Serious: Yes (Hospitalization)
  Sender: FDA-Public Use
  Company Number: US-US-EMD SERONO, INC.-7107860

PATIENT
  Sex: Female

DRUGS (3)
  1. REBIF [Suspect]
     Indication: MULTIPLE SCLEROSIS
     Route: 058
     Dates: start: 20040112, end: 20111101
  2. PROVIGIL [Concomitant]
  3. ALER CAP [Concomitant]
     Indication: MULTIPLE ALLERGIES

REACTIONS (2)
  - FALLOPIAN TUBE CYST [None]
  - UTERINE LEIOMYOMA [None]
